FAERS Safety Report 16417118 (Version 2)
Quarter: 2019Q3

REPORT INFORMATION
  Report Type: Spontaneous
  Country: US (occurrence: US)
  Receive Date: 20190611
  Receipt Date: 20190719
  Transmission Date: 20191004
  Serious: Yes (Death, Other)
  Sender: FDA-Public Use
  Company Number: US-PURDUE-USA-2019-0147431

PATIENT
  Age: 28 Year
  Sex: Male
  Weight: 136.5 kg

DRUGS (3)
  1. HYDROCODONE BITARTRATE (SIMILAR TO NDA 206627) [Suspect]
     Active Substance: HYDROCODONE BITARTRATE
     Indication: DRUG ABUSE
     Route: 042
  2. HEROIN [Suspect]
     Active Substance: DIAMORPHINE
     Indication: DRUG ABUSE
     Route: 042
  3. FENTANYL. [Suspect]
     Active Substance: FENTANYL
     Indication: DRUG ABUSE
     Route: 042

REACTIONS (4)
  - Unresponsive to stimuli [Not Recovered/Not Resolved]
  - Drug abuse [Not Recovered/Not Resolved]
  - Death [Fatal]
  - Drug dependence [Not Recovered/Not Resolved]

NARRATIVE: CASE EVENT DATE: 20170831
